FAERS Safety Report 12108621 (Version 2)
Quarter: 2019Q1

REPORT INFORMATION
  Report Type: Spontaneous
  Country: US (occurrence: US)
  Receive Date: 20160224
  Receipt Date: 20190109
  Transmission Date: 20190417
  Serious: No
  Sender: FDA-Public Use
  Company Number: US-BIOGEN-2016BI00190916

PATIENT
  Age: 60 Year
  Sex: Female

DRUGS (1)
  1. TECFIDERA [Suspect]
     Active Substance: DIMETHYL FUMARATE
     Indication: MULTIPLE SCLEROSIS
     Route: 048
     Dates: start: 20141028, end: 20160128

REACTIONS (5)
  - Central nervous system lesion [Not Recovered/Not Resolved]
  - Memory impairment [Not Recovered/Not Resolved]
  - Dyspnoea [Not Recovered/Not Resolved]
  - Gait disturbance [Not Recovered/Not Resolved]
  - Multiple sclerosis relapse [Not Recovered/Not Resolved]

NARRATIVE: CASE EVENT DATE: 201512
